FAERS Safety Report 24593767 (Version 1)
Quarter: 2024Q4

REPORT INFORMATION
  Report Type: Spontaneous
  Country: US (occurrence: US)
  Receive Date: 20241108
  Receipt Date: 20241108
  Transmission Date: 20250114
  Serious: No
  Sender: SANDOZ
  Company Number: US-002147023-PHEH2012US007603

PATIENT
  Sex: Female

DRUGS (1)
  1. VIVELLE-DOT [Suspect]
     Active Substance: ESTRADIOL
     Indication: Product used for unknown indication
     Dosage: 0.75 MG, QW2
     Route: 062

REACTIONS (2)
  - Fluid retention [Unknown]
  - Cortisol increased [Unknown]
